FAERS Safety Report 6391265-8 (Version None)
Quarter: 2009Q4

REPORT INFORMATION
  Report Type: 
  Country: None (occurrence: None)
  Receive Date: 20091006
  Receipt Date: 20091006
  Transmission Date: 20100525
  Serious: Yes (Hospitalization, Disabling, Other)
  Sender: FDA-Public Use
  Company Number: None

PATIENT
  Age: 57 Year
  Sex: Female
  Weight: 66.6788 kg

DRUGS (1)
  1. PAPAVERINE 150 MG EON LABS [Suspect]
     Indication: TINNITUS
     Dosage: 1 EVERY 12 HOURS PO
     Route: 048
     Dates: start: 20090717, end: 20090902

REACTIONS (2)
  - HEPATITIS [None]
  - PRURITUS [None]
